FAERS Safety Report 4948051-2 (Version None)
Quarter: 2006Q1

REPORT INFORMATION
  Report Type: 
  Country: None (occurrence: None)
  Receive Date: 20060320
  Receipt Date: 20060306
  Transmission Date: 20060701
  Serious: Yes (Other)
  Sender: FDA-Public Use
  Company Number: NL-MERCK-0603NLD00007

PATIENT
  Age: 48 Year
  Sex: Female

DRUGS (5)
  1. EMEND [Suspect]
     Route: 048
     Dates: start: 20060110, end: 20060110
  2. EMEND [Suspect]
     Route: 048
     Dates: start: 20060111, end: 20060112
  3. DEXAMETHASONE [Concomitant]
     Route: 065
     Dates: start: 20060110, end: 20060110
  4. ONDANSETRON HYDROCHLORIDE [Concomitant]
     Route: 065
     Dates: start: 20060110, end: 20060110
  5. ANTINEOPLASTIC (UNSPECIFIED) [Concomitant]
     Route: 065
     Dates: start: 20060110

REACTIONS (4)
  - DRUG INEFFECTIVE [None]
  - FEAR [None]
  - INCORRECT DOSE ADMINISTERED [None]
  - MALAISE [None]
